FAERS Safety Report 6495288-X (Version None)
Quarter: 2009Q4

REPORT INFORMATION
  Report Type: 
  Country: None (occurrence: None)
  Receive Date: 20091214
  Receipt Date: 20090521
  Transmission Date: 20100525
  Serious: No
  Sender: FDA-Public Use
  Company Number: US-BRISTOL-MYERS SQUIBB COMPANY-14634208

PATIENT
  Age: 50 Year
  Sex: Female

DRUGS (2)
  1. ABILIFY [Suspect]
     Indication: DEPRESSION
     Dosage: INITIALLY 5 MG AND INCREASED TO 10 MG FOR 2 TO 3 WEEKS.
  2. ABILIFY [Suspect]
     Indication: ANXIETY
     Dosage: INITIALLY 5 MG AND INCREASED TO 10 MG FOR 2 TO 3 WEEKS.

REACTIONS (1)
  - OEDEMA [None]
